APPROVED DRUG PRODUCT: LEVORPHANOL TARTRATE
Active Ingredient: LEVORPHANOL TARTRATE
Strength: 2MG
Dosage Form/Route: TABLET;ORAL
Application: A213906 | Product #001 | TE Code: AB
Applicant: SUN PHARMACEUTICAL INDUSTRIES INC
Approved: Jun 17, 2021 | RLD: No | RS: No | Type: RX